FAERS Safety Report 19992013 (Version 3)
Quarter: 2022Q1

REPORT INFORMATION
  Report Type: Report from Study
  Country: BR (occurrence: BR)
  Receive Date: 20211026
  Receipt Date: 20220311
  Transmission Date: 20220423
  Serious: Yes (Hospitalization, Disabling, Other)
  Sender: FDA-Public Use
  Company Number: BR-ABBVIE-21K-020-4130762-00

PATIENT
  Sex: Female
  Weight: 69 kg

DRUGS (3)
  1. RINVOQ [Suspect]
     Active Substance: UPADACITINIB
     Indication: Rheumatoid arthritis
     Route: 048
     Dates: start: 20210827, end: 2021
  2. RINVOQ [Suspect]
     Active Substance: UPADACITINIB
     Route: 048
     Dates: start: 2021
  3. BETINA [Concomitant]
     Indication: Product used for unknown indication

REACTIONS (28)
  - Angina pectoris [Unknown]
  - Abdominal pain upper [Unknown]
  - Pneumonia [Recovered/Resolved]
  - Abdominal pain lower [Recovered/Resolved]
  - Headache [Unknown]
  - Urinary tract infection [Recovered/Resolved]
  - Back pain [Recovering/Resolving]
  - Sepsis [Unknown]
  - Visual impairment [Recovering/Resolving]
  - Fall [Recovering/Resolving]
  - Fall [Recovered/Resolved]
  - Lung disorder [Unknown]
  - Platelet count decreased [Unknown]
  - Labyrinthitis [Recovered/Resolved]
  - Peripheral swelling [Recovering/Resolving]
  - Eye swelling [Recovering/Resolving]
  - Mass [Recovering/Resolving]
  - Pulmonary mass [Unknown]
  - Pollakiuria [Recovered/Resolved]
  - Haematoma [Recovered/Resolved]
  - Fall [Recovered/Resolved]
  - Limb injury [Recovered/Resolved]
  - Retching [Recovered/Resolved]
  - Eye irritation [Recovering/Resolving]
  - Dry eye [Recovering/Resolving]
  - Visual impairment [Recovering/Resolving]
  - Eye swelling [Recovered/Resolved]
  - Anaemia [Unknown]

NARRATIVE: CASE EVENT DATE: 20210101
